FAERS Safety Report 23405389 (Version 2)
Quarter: 2024Q1

REPORT INFORMATION
  Report Type: Report from Study
  Country: TR (occurrence: TR)
  Receive Date: 20240116
  Receipt Date: 20240207
  Transmission Date: 20240410
  Serious: Yes (Hospitalization)
  Sender: FDA-Public Use
  Company Number: TR-002147023-NVSC2024TR006350

PATIENT
  Age: 78 Year
  Sex: Female
  Weight: 85 kg

DRUGS (2)
  1. SCEMBLIX [Suspect]
     Active Substance: ASCIMINIB HYDROCHLORIDE
     Indication: Chronic myeloid leukaemia
     Dosage: 80 UNK
     Route: 048
     Dates: start: 20231017, end: 20240105
  2. SCEMBLIX [Suspect]
     Active Substance: ASCIMINIB HYDROCHLORIDE
     Dosage: 40 MG, QD
     Route: 065
     Dates: start: 20240108

REACTIONS (1)
  - Accelerated hypertension [Recovered/Resolved]

NARRATIVE: CASE EVENT DATE: 20240105
